FAERS Safety Report 9385206 (Version 1)
Quarter: 2013Q3

REPORT INFORMATION
  Report Type: Spontaneous
  Country: US (occurrence: US)
  Receive Date: 20130705
  Receipt Date: 20130705
  Transmission Date: 20140515
  Serious: Yes (Other)
  Sender: FDA-Public Use
  Company Number: US-GLAXOSMITHKLINE-A0797805A

PATIENT
  Age: 74 Year
  Sex: Male

DRUGS (6)
  1. AVANDIA [Suspect]
     Indication: DIABETES MELLITUS
     Dosage: 8MG PER DAY
     Route: 048
     Dates: start: 20000101
  2. SIMVASTATIN [Concomitant]
  3. RAMIPRIL [Concomitant]
  4. GLYBURIDE [Concomitant]
  5. INDOMETHACIN [Concomitant]
  6. ALLOPURINOL [Concomitant]

REACTIONS (2)
  - Blindness [Unknown]
  - Open angle glaucoma [Unknown]
